FAERS Safety Report 4737976-9 (Version None)
Quarter: 2005Q3

REPORT INFORMATION
  Report Type: 
  Country: None (occurrence: None)
  Receive Date: 20050809
  Receipt Date: 20050427
  Transmission Date: 20060218
  Serious: Yes (Other)
  Sender: FDA-Public Use
  Company Number: PHEH2005US04953

PATIENT
  Age: 68 Year
  Sex: Male
  Weight: 77 kg

DRUGS (3)
  1. ZOMETA [Suspect]
     Indication: METASTASES TO BONE
     Dosage: 4 MG MONTHLY
     Dates: start: 20000101
  2. CASODEX [Concomitant]
  3. ZOLADEX [Concomitant]

REACTIONS (9)
  - ABSCESS [None]
  - ASEPTIC NECROSIS BONE [None]
  - BONE DEBRIDEMENT [None]
  - BONE DISORDER [None]
  - EXCESSIVE GRANULATION TISSUE [None]
  - FISTULA [None]
  - GINGIVAL DISORDER [None]
  - STOMATITIS [None]
  - TOOTH EXTRACTION [None]
